FAERS Safety Report 14988383 (Version 1)
Quarter: 2018Q2

REPORT INFORMATION
  Report Type: Spontaneous
  Country: DE (occurrence: DE)
  Receive Date: 20180608
  Receipt Date: 20180608
  Transmission Date: 20180711
  Serious: Yes (Other)
  Sender: FDA-Public Use
  Company Number: DE-PFIZER INC-2018232397

PATIENT
  Age: 63 Year
  Sex: Female

DRUGS (2)
  1. AMLODIPIN [Concomitant]
     Active Substance: AMLODIPINE BESYLATE
     Dosage: 5MG ONCE DAILY (1-0-0-0)
  2. IBUPROFEN. [Suspect]
     Active Substance: IBUPROFEN
     Dosage: NK MG, NK

REACTIONS (4)
  - Acute respiratory failure [Unknown]
  - Vomiting [Unknown]
  - Nausea [Unknown]
  - Swelling [Unknown]
